FAERS Safety Report 25163565 (Version 1)
Quarter: 2025Q2

REPORT INFORMATION
  Report Type: Spontaneous
  Country: PT (occurrence: PT)
  Receive Date: 20250405
  Receipt Date: 20250405
  Transmission Date: 20250717
  Serious: Yes (Death, Hospitalization, Other)
  Sender: MERCK SHARP AND DOHME
  Company Number: PT-009507513-2270118

PATIENT
  Age: 80 Year
  Sex: Male

DRUGS (1)
  1. PEMBROLIZUMAB [Suspect]
     Active Substance: PEMBROLIZUMAB
     Indication: Choroid melanoma
     Dates: start: 202301

REACTIONS (4)
  - Malignant neoplasm progression [Unknown]
  - Hepatic vein thrombosis [Unknown]
  - Budd-Chiari syndrome [Unknown]
  - Hepatitis [Fatal]

NARRATIVE: CASE EVENT DATE: 20240101
